FAERS Safety Report 17080613 (Version 1)
Quarter: 2019Q4

REPORT INFORMATION
  Report Type: Spontaneous
  Country: NL (occurrence: NL)
  Receive Date: 20191127
  Receipt Date: 20191127
  Transmission Date: 20200122
  Serious: Yes (Other)
  Sender: FDA-Public Use
  Company Number: NL-TEVA-2019-NL-1141920

PATIENT
  Age: 86 Year
  Sex: Female
  Weight: 55 kg

DRUGS (1)
  1. FLUTICASON [Suspect]
     Active Substance: FLUTICASONE
     Indication: RHINITIS
     Dosage: 2X DAILY, 1 DOSAGE FORMS PER 12  HR
     Dates: start: 20191002, end: 20191004

REACTIONS (2)
  - Syncope [Recovered/Resolved]
  - Chest pain [Recovered/Resolved]

NARRATIVE: CASE EVENT DATE: 20191003
